FAERS Safety Report 24951964 (Version 2)
Quarter: 2025Q1

REPORT INFORMATION
  Report Type: Spontaneous
  Country: IT (occurrence: IT)
  Receive Date: 20250210
  Receipt Date: 20250224
  Transmission Date: 20250408
  Serious: Yes (Life-Threatening, Other)
  Sender: NOVARTIS
  Company Number: None

PATIENT
  Age: 22 Year
  Sex: Male
  Weight: 90 kg

DRUGS (5)
  1. ARIPIPRAZOLE [Suspect]
     Active Substance: ARIPIPRAZOLE
     Indication: Product used for unknown indication
     Dosage: 420 MG, Q24H (BLISTER DA 7 CP L^UNO (TOT 42 CP) ARIPIPRAZOLO 10 MG)
     Route: 048
     Dates: start: 20220709, end: 20220709
  2. TEGRETOL [Suspect]
     Active Substance: CARBAMAZEPINE
     Indication: Product used for unknown indication
     Dosage: 26 G, Q24H (12 BLISTER DA 10 CP (120 CP) TEGRETOL 200 MG + 1 BLISTER (10 CP) TEGRETOL 200 MG A RILAS
     Route: 048
     Dates: start: 20220709, end: 20220709
  3. XANAX [Suspect]
     Active Substance: ALPRAZOLAM
     Indication: Product used for unknown indication
     Dosage: CONFEZIONE DI XANAX 0,5 CON 2 BLISTER, 20 CP TOTALI VUOTI
     Route: 048
     Dates: start: 20220709, end: 20220709
  4. VENLAFAXINE HYDROCHLORIDE [Suspect]
     Active Substance: VENLAFAXINE HYDROCHLORIDE
     Indication: Product used for unknown indication
     Dosage: 3 BLISTER VUOTI DA 8 CP L^UNO (TOT 24 CP) DI EFEXOR 37,5 MG + 2 BLISTER VUOTI (28 CP TOT) DI EFEXOR
     Route: 048
     Dates: start: 20220709, end: 20220709
  5. TACHIPIRINA [Suspect]
     Active Substance: ACETAMINOPHEN
     Indication: Product used for unknown indication
     Dosage: 1 BLISTER DI TACHIPIRINA 500 MG CON 4 CP MANCANTI
     Route: 048
     Dates: start: 20220709, end: 20220709

REACTIONS (5)
  - Drug abuse [Recovered/Resolved]
  - Intentional self-injury [Recovered/Resolved]
  - Coma [Recovered/Resolved]
  - Psychomotor hyperactivity [Recovered/Resolved]
  - Aggression [Recovered/Resolved]

NARRATIVE: CASE EVENT DATE: 20220709
